FAERS Safety Report 22060225 (Version 1)
Quarter: 2023Q1

REPORT INFORMATION
  Report Type: Report from Study
  Country: ES (occurrence: ES)
  Receive Date: 20230303
  Receipt Date: 20230303
  Transmission Date: 20230418
  Serious: Yes (Other)
  Sender: FDA-Public Use
  Company Number: ES-JNJFOC-20230300700

PATIENT

DRUGS (4)
  1. DARZALEX [Suspect]
     Active Substance: DARATUMUMAB
     Indication: Plasma cell myeloma refractory
     Route: 065
  2. VELCADE [Suspect]
     Active Substance: BORTEZOMIB
     Indication: Plasma cell myeloma refractory
     Route: 065
  3. DEXAMETHASONE [Suspect]
     Active Substance: DEXAMETHASONE
     Indication: Plasma cell myeloma refractory
     Route: 065
  4. REVLIMID [Suspect]
     Active Substance: LENALIDOMIDE
     Indication: Plasma cell myeloma refractory
     Route: 065

REACTIONS (11)
  - Neutropenia [Unknown]
  - Thrombocytopenia [Unknown]
  - Escherichia bacteraemia [Unknown]
  - Hip fracture [Unknown]
  - Pneumonia [Unknown]
  - Infusion related reaction [Unknown]
  - Anaemia [Unknown]
  - Haematotoxicity [Unknown]
  - Asthenia [Unknown]
  - Testicular oedema [Unknown]
  - Diarrhoea [Unknown]
